FAERS Safety Report 8407456-8 (Version None)
Quarter: 2012Q2

REPORT INFORMATION
  Report Type: 
  Country: None (occurrence: None)
  Receive Date: 20120604
  Receipt Date: 20120530
  Transmission Date: 20120825
  Serious: Yes (Hospitalization)
  Sender: FDA-Public Use
  Company Number: JP-BAYER-201013840BYL

PATIENT
  Age: 84 Year
  Sex: Male
  Weight: 56 kg

DRUGS (9)
  1. NEXAVAR [Suspect]
     Indication: HEPATIC NEOPLASM MALIGNANT
     Dosage: 400 MG (DAILY DOSE), , ORAL
     Route: 048
     Dates: start: 20100716, end: 20100801
  2. LOCHOLEST [Suspect]
     Indication: HYPERLIPIDAEMIA
     Dosage: 20 MG (DAILY DOSE), , ORAL
     Route: 048
     Dates: end: 20100823
  3. LOCHOLEST [Suspect]
  4. ATELEC [Suspect]
     Indication: HYPERTENSION
     Dosage: 5 MG (DAILY DOSE), , ORAL
     Route: 048
  5. ATELEC [Suspect]
  6. CARVEDILOL [Suspect]
  7. DOXAZON [Suspect]
  8. CARVEDILOL [Suspect]
     Indication: HYPERTENSION
     Dosage: 5 MG (DAILY DOSE), , ORAL
     Route: 048
  9. DOXAZON [Suspect]
     Indication: HYPERTENSION
     Dosage: 2 MG (DAILY DOSE), , ORAL
     Route: 048
     Dates: start: 20100823, end: 20100823

REACTIONS (9)
  - ALANINE AMINOTRANSFERASE INCREASED [None]
  - PALMAR-PLANTAR ERYTHRODYSAESTHESIA SYNDROME [None]
  - BLOOD LACTATE DEHYDROGENASE INCREASED [None]
  - BLOOD CREATINE PHOSPHOKINASE INCREASED [None]
  - DIARRHOEA [None]
  - BLOOD PRESSURE INCREASED [None]
  - CEREBRAL INFARCTION [None]
  - ASPARTATE AMINOTRANSFERASE INCREASED [None]
  - PLATELET COUNT DECREASED [None]
